FAERS Safety Report 8229155-8 (Version None)
Quarter: 2012Q1

REPORT INFORMATION
  Report Type: 
  Country: None (occurrence: None)
  Receive Date: 20120322
  Receipt Date: 20120314
  Transmission Date: 20120608
  Serious: Yes (Other)
  Sender: FDA-Public Use
  Company Number: AU-JNJFOC-20120306721

PATIENT
  Sex: Female

DRUGS (2)
  1. STELARA [Suspect]
     Route: 058
     Dates: start: 20110124
  2. STELARA [Suspect]
     Indication: PRODUCT USED FOR UNKNOWN INDICATION
     Route: 058
     Dates: start: 20111228

REACTIONS (1)
  - BREAST CANCER IN SITU [None]
